FAERS Safety Report 9329713 (Version 1)
Quarter: 2013Q2

REPORT INFORMATION
  Report Type: Spontaneous
  Country: US (occurrence: US)
  Receive Date: 20130604
  Receipt Date: 20130604
  Transmission Date: 20140414
  Serious: No
  Sender: FDA-Public Use
  Company Number: US-SANOFI-AVENTIS-2013SA034568

PATIENT
  Age: 91 Year
  Sex: Female

DRUGS (2)
  1. SOLOSTAR [Suspect]
     Indication: DEVICE THERAPY
  2. LANTUS SOLOSTAR [Suspect]
     Indication: TYPE 2 DIABETES MELLITUS
     Dosage: 16 AND 10 (AM AND PM) UNITS UNSPCIFIED
     Route: 051

REACTIONS (4)
  - Fibromyalgia [Unknown]
  - Pain [Unknown]
  - Herpes zoster [Unknown]
  - Neuropathy peripheral [Unknown]
